FAERS Safety Report 5234849-2 (Version None)
Quarter: 2007Q1

REPORT INFORMATION
  Report Type: 
  Country: None (occurrence: None)
  Receive Date: 20070209
  Receipt Date: 20070202
  Transmission Date: 20070707
  Serious: Yes (Other)
  Sender: FDA-Public Use
  Company Number: JP-PFIZER INC-2007007360

PATIENT
  Age: 12 Month
  Sex: Male

DRUGS (1)
  1. ZOLOFT [Suspect]
     Route: 048

REACTIONS (2)
  - ACCIDENTAL EXPOSURE [None]
  - BLOOD CREATINE PHOSPHOKINASE INCREASED [None]
